FAERS Safety Report 12331673 (Version 1)
Quarter: 2016Q2

REPORT INFORMATION
  Report Type: Spontaneous
  Country: CN (occurrence: CN)
  Receive Date: 20160504
  Receipt Date: 20160504
  Transmission Date: 20160815
  Serious: Yes (Other)
  Sender: FDA-Public Use
  Company Number: CN-PFIZER INC-2016237508

PATIENT
  Age: 84 Year
  Sex: Male

DRUGS (4)
  1. PHARMORUBICIN [Suspect]
     Active Substance: EPIRUBICIN
     Indication: HEPATIC CANCER
     Dosage: 20 MG, 1X/DAY
     Route: 013
     Dates: start: 20151104, end: 20151104
  2. FLUOROURACIL. [Concomitant]
     Active Substance: FLUOROURACIL
     Indication: HEPATIC CANCER
     Dosage: 0.75 G, 1X/DAY
     Route: 013
     Dates: start: 20151104, end: 20151104
  3. ONDANSETRON HYDROCHLORIDE. [Concomitant]
     Active Substance: ONDANSETRON HYDROCHLORIDE
     Indication: HEPATIC CANCER
     Dosage: 8 MG, 1X/DAY
     Route: 042
     Dates: start: 20151104, end: 20151104
  4. OXALIPLATIN. [Concomitant]
     Active Substance: OXALIPLATIN
     Indication: HEPATIC CANCER
     Dosage: 100 MG, 1X/DAY
     Route: 013
     Dates: start: 20151104, end: 20151104

REACTIONS (1)
  - Liver injury [Recovered/Resolved]

NARRATIVE: CASE EVENT DATE: 20151111
